FAERS Safety Report 12963497 (Version 1)
Quarter: 2016Q4

REPORT INFORMATION
  Report Type: Spontaneous
  Country: GB (occurrence: GB)
  Receive Date: 20161122
  Receipt Date: 20161122
  Transmission Date: 20170207
  Serious: Yes (Other)
  Sender: FDA-Public Use
  Company Number: GB-ACCORD-045660

PATIENT
  Age: 27 Year
  Sex: Male
  Weight: 90 kg

DRUGS (3)
  1. PARACETAMOL BOOTS [Concomitant]
  2. TRAMADOL/TRAMADOL HYDROCHLORIDE [Suspect]
     Active Substance: TRAMADOL HYDROCHLORIDE
     Indication: BURNS SECOND DEGREE
     Dosage: INITIALLY TOOK 100 MG QID IMMEDIATE RELEASE CAPSULES FROM 25 TO 27-OCT-2016 FOR 3 DAYS
     Route: 048
     Dates: start: 20161028
  3. IBUPROFEN BOOTS [Concomitant]
     Active Substance: IBUPROFEN

REACTIONS (4)
  - Hyperhidrosis [Unknown]
  - Syncope [Unknown]
  - Hiccups [Unknown]
  - Dysuria [Not Recovered/Not Resolved]

NARRATIVE: CASE EVENT DATE: 20161028
